FAERS Safety Report 18282878 (Version 1)
Quarter: 2020Q3

REPORT INFORMATION
  Report Type: Report from Study
  Country: US (occurrence: US)
  Receive Date: 20200918
  Receipt Date: 20200918
  Transmission Date: 20201103
  Serious: Yes (Hospitalization)
  Sender: FDA-Public Use
  Company Number: US-PFIZER INC-2020358114

PATIENT
  Age: 17 Year
  Sex: Male
  Weight: 63.1 kg

DRUGS (8)
  1. INCB018424 [Suspect]
     Active Substance: RUXOLITINIB
     Dosage: 80 MG, BID (C D1?14, 29?42; DI D1?14)
     Route: 048
     Dates: start: 20191030, end: 20200709
  2. METHOTREXATE. [Suspect]
     Active Substance: METHOTREXATE
     Indication: ACUTE LYMPHOCYTIC LEUKAEMIA
     Dosage: 33.75 MG (MC1 D8, 15, 22, 36)
     Route: 048
     Dates: start: 20200721
  3. VINCRISTINE SULFATE. [Suspect]
     Active Substance: VINCRISTINE SULFATE
     Indication: ACUTE LYMPHOCYTIC LEUKAEMIA
     Dosage: 2 MG (MC1 D1, 29, 57)
     Route: 042
     Dates: start: 20200714
  4. METHOTREXATE SODIUM. [Suspect]
     Active Substance: METHOTREXATE SODIUM
     Indication: ACUTE LYMPHOCYTIC LEUKAEMIA
     Dosage: UNK
     Route: 037
     Dates: start: 20200714
  5. PREDNISONE. [Suspect]
     Active Substance: PREDNISONE
     Indication: ACUTE LYMPHOCYTIC LEUKAEMIA
     Dosage: 32.5 MG, 2X/DAY (MC1 D1?5, 29?33)
     Route: 048
     Dates: start: 20200714
  6. MERCAPTOPURINE. [Suspect]
     Active Substance: MERCAPTOPURINE
     Indication: ACUTE LYMPHOCYTIC LEUKAEMIA
     Dosage: 125 MG, 1X/DAY (MC1 D1?40)
     Route: 048
     Dates: start: 20200714, end: 20200821
  7. INCB018424 [Suspect]
     Active Substance: RUXOLITINIB
     Indication: ACUTE LYMPHOCYTIC LEUKAEMIA
     Dosage: 75 MG, BID (IM1 D1?14, 29?42)
     Route: 048
     Dates: start: 20190802, end: 20191225
  8. INCB018424 [Suspect]
     Active Substance: RUXOLITINIB
     Dosage: 85 MG, 2X/DAY (MC1 D1?14, 29?40)
     Route: 048
     Dates: start: 20200714

REACTIONS (1)
  - Febrile neutropenia [Not Recovered/Not Resolved]

NARRATIVE: CASE EVENT DATE: 20200825
